FAERS Safety Report 4522630-9 (Version None)
Quarter: 2004Q4

REPORT INFORMATION
  Report Type: 
  Country: None (occurrence: None)
  Receive Date: 20041207
  Receipt Date: 20041124
  Transmission Date: 20050328
  Serious: Yes (Hospitalization)
  Sender: FDA-Public Use
  Company Number: JP_041105252

PATIENT
  Age: 60 Year
  Sex: Male

DRUGS (5)
  1. HUMACART-HUMAN NPH INSULIN (RDNA) (HUMAN INSULIN (R [Suspect]
     Indication: DIABETES MELLITUS NON-INSULIN-DEPENDENT
     Dosage: 28 U AT BEDTIME
     Dates: start: 20040705
  2. HUMALOG [Concomitant]
  3. TOUGHMAC E [Concomitant]
  4. URSODIOL [Concomitant]
  5. LASIX [Concomitant]

REACTIONS (4)
  - BLOOD BILIRUBIN INCREASED [None]
  - BLOOD POTASSIUM DECREASED [None]
  - HEPATIC FAILURE [None]
  - HYPOGLYCAEMIA [None]
